FAERS Safety Report 8314247 (Version 2)
Quarter: 2013Q4

REPORT INFORMATION
  Report Type: Spontaneous
  Country: US (occurrence: US)
  Receive Date: 20111228
  Receipt Date: 20131125
  Transmission Date: 20140711
  Serious: Yes (Hospitalization)
  Sender: FDA-Public Use
  Company Number: US-GLAXOSMITHKLINE-A0934355A

PATIENT
  Age: 74 Year
  Sex: Male

DRUGS (1)
  1. AVANDIA [Suspect]
     Indication: DIABETES MELLITUS
     Dosage: 4MG TWICE PER DAY
     Route: 048
     Dates: start: 200206, end: 200709

REACTIONS (5)
  - Myocardial infarction [Not Recovered/Not Resolved]
  - Nephropathy [Unknown]
  - Oedema [Unknown]
  - Stent placement [Unknown]
  - Cardiac disorder [Unknown]
